FAERS Safety Report 9299297 (Version 2)
Quarter: 2013Q4

REPORT INFORMATION
  Report Type: Spontaneous
  Country: GB (occurrence: GB)
  Receive Date: 20130520
  Receipt Date: 20131022
  Transmission Date: 20140711
  Serious: Yes (Other)
  Sender: FDA-Public Use
  Company Number: PHHY2013GB048986

PATIENT
  Sex: Male

DRUGS (7)
  1. CITALOPRAM [Suspect]
     Indication: DEPRESSION
     Dosage: 2 ML, QD, SHOULD HAVE BEEN 8MG (4 DROPS) DAILY AND WAS PRESCRIBED AS 2ML DAILY
     Route: 048
     Dates: start: 20120702, end: 20130218
  2. RANITIDINE [Concomitant]
  3. ATORVASTATIN [Concomitant]
  4. CLOPIDOGREL [Concomitant]
  5. CO-CODAMOL [Concomitant]
     Dosage: UNK UKN, UNK, 8/500 (UNITS NOT SPECIFIED)
  6. HUMULIN [Concomitant]
  7. BUTRANS//BUPRENORPHINE [Concomitant]
     Dosage: 20 UG, UNK

REACTIONS (3)
  - Lethargy [Recovered/Resolved]
  - Somnolence [Recovered/Resolved]
  - Drug prescribing error [Unknown]
